FAERS Safety Report 22365219 (Version 1)
Quarter: 2023Q2

REPORT INFORMATION
  Report Type: Report from Study
  Country: CA (occurrence: CA)
  Receive Date: 20230525
  Receipt Date: 20230525
  Transmission Date: 20230722
  Serious: Yes (Other)
  Sender: FDA-Public Use
  Company Number: CA-TAKEDA-2023TUS050566

PATIENT
  Age: 69 Year
  Sex: Male

DRUGS (8)
  1. VEDOLIZUMAB [Suspect]
     Active Substance: VEDOLIZUMAB
     Indication: Colitis ulcerative
     Dosage: 300 MILLIGRAM
     Route: 042
     Dates: start: 20230504
  2. CORTISONE [Suspect]
     Active Substance: CORTISONE
     Indication: Colitis ulcerative
     Dosage: UNK
     Route: 065
  3. NESINA [Concomitant]
     Active Substance: ALOGLIPTIN BENZOATE
     Indication: Type 2 diabetes mellitus
     Dosage: 25 MILLIGRAM, BID
     Dates: start: 20230511
  4. GLICLAZIDE [Concomitant]
     Active Substance: GLICLAZIDE
     Indication: Type 2 diabetes mellitus
     Dosage: UNK
     Dates: start: 20230511
  5. TELMISARTAN [Concomitant]
     Active Substance: TELMISARTAN
     Indication: Hypertension
     Dosage: 40 MILLIGRAM
  6. Salofalk [Concomitant]
     Dosage: UNK
     Dates: start: 20230307
  7. PREDNISONE [Concomitant]
     Active Substance: PREDNISONE
     Dosage: UNK
     Dates: start: 20230307
  8. MESALAMINE [Concomitant]
     Active Substance: MESALAMINE
     Dosage: UNK
     Dates: start: 20230307

REACTIONS (1)
  - Diabetes mellitus [Recovering/Resolving]
